FAERS Safety Report 8542480-6 (Version None)
Quarter: 2012Q3

REPORT INFORMATION
  Report Type: 
  Country: None (occurrence: None)
  Receive Date: 20120726
  Receipt Date: 20111227
  Transmission Date: 20120928
  Serious: Yes (Other)
  Sender: FDA-Public Use
  Company Number: US-ASTRAZENECA-2009UW11248

PATIENT
  Age: 769 Month
  Sex: Female

DRUGS (37)
  1. THEOPHLIN [Concomitant]
     Dates: start: 20070908
  2. DILTIAZEM HCL [Concomitant]
     Dates: start: 20070908
  3. LUNESTA [Concomitant]
     Route: 048
     Dates: start: 20081222
  4. SEROQUEL [Suspect]
     Indication: BIPOLAR DISORDER
     Dosage: 25 MG, 100 MG, 200 MG
     Route: 048
     Dates: start: 20030101, end: 20080101
  5. SYNTHROID [Concomitant]
     Route: 048
     Dates: start: 20081124
  6. KLOR-CON [Concomitant]
     Dates: start: 20070908
  7. LEVOTHYROXINE SODIUM [Concomitant]
     Dates: start: 20070906
  8. SEROQUEL [Suspect]
     Route: 048
     Dates: start: 20081124
  9. PROZAC [Concomitant]
     Route: 048
     Dates: start: 20081229
  10. SYNTHROID [Concomitant]
     Dates: start: 20061012
  11. KLOR-CON [Concomitant]
     Dates: start: 20061012
  12. COGENTIN [Concomitant]
     Route: 048
     Dates: start: 20081124
  13. KLOR-CON [Concomitant]
     Route: 048
     Dates: start: 20080212
  14. PATANOL [Concomitant]
     Dates: start: 20061012
  15. ATIVAN [Concomitant]
     Dosage: PRN
     Route: 048
     Dates: start: 20081111
  16. DILTIAZEM HCL [Concomitant]
     Route: 048
     Dates: start: 20080212
  17. TRILEPTAL [Concomitant]
     Dates: start: 20070908
  18. PROZAC [Concomitant]
     Dates: start: 20070906
  19. LAMICTAL [Concomitant]
     Dates: start: 20070906
  20. NEXIUM [Concomitant]
     Dates: start: 20061012
  21. DEMADEX [Concomitant]
     Route: 048
     Dates: start: 20080212
  22. DEPAKOTE ER [Concomitant]
     Dates: start: 20081124
  23. IBUPROFEN [Concomitant]
     Indication: PAIN
     Dates: start: 20070924
  24. PREMPRO [Concomitant]
     Dosage: 0.625 MG-2.5 MG
     Dates: start: 20070914
  25. SEROQUEL [Suspect]
     Route: 048
     Dates: start: 20061012
  26. PROZAC [Concomitant]
     Dates: start: 20061012
  27. LAMICTAL [Concomitant]
     Dates: start: 20061012
  28. LAMICTAL [Concomitant]
     Route: 048
     Dates: start: 20081124
  29. DEPAKOTE ER [Concomitant]
     Dosage: 250 MG ONCE A DAY AND 500 MG AT BED TIME
     Route: 048
     Dates: start: 20081208
  30. OMEPRAZOLE [Concomitant]
     Dates: start: 20070908
  31. OMEPRAZOLE [Concomitant]
     Route: 048
     Dates: start: 20080212
  32. SEROQUEL [Suspect]
     Route: 048
     Dates: start: 20070908
  33. SEROQUEL [Suspect]
     Route: 048
     Dates: start: 20081218
  34. THEOPHLIN [Concomitant]
     Dates: start: 20061012
  35. DEMADEX [Concomitant]
     Dates: start: 20070908
  36. DEPAKOTE ER [Concomitant]
     Dosage: 250 MG TO 500 MG
     Dates: start: 20070908
  37. PREMPRO [Concomitant]
     Dosage: 0.625 MG-2.5 MG ONCE A DAY
     Route: 048
     Dates: start: 20080929

REACTIONS (2)
  - NEUROLEPTIC MALIGNANT SYNDROME [None]
  - TARDIVE DYSKINESIA [None]
